FAERS Safety Report 5115158-9 (Version None)
Quarter: 2006Q3

REPORT INFORMATION
  Report Type: 
  Country: None (occurrence: None)
  Receive Date: 20060926
  Receipt Date: 20060921
  Transmission Date: 20061208
  Serious: Yes (Other)
  Sender: FDA-Public Use
  Company Number: CY-SANOFI-SYNTHELABO-A01200607887

PATIENT
  Sex: Male

DRUGS (7)
  1. FLUOROURACIL [Concomitant]
     Route: 042
     Dates: start: 20060705, end: 20060706
  2. FLUOROURACIL [Concomitant]
     Route: 042
  3. LEUCOVORIN CALCIUM [Concomitant]
     Route: 042
     Dates: start: 20060705, end: 20060706
  4. LEUCOVORIN CALCIUM [Concomitant]
     Route: 042
  5. ELOXATIN [Suspect]
     Indication: COLORECTAL CANCER
     Route: 042
     Dates: start: 20060705, end: 20060705
  6. ELOXATIN [Suspect]
     Route: 042
  7. ELOXATIN [Suspect]
     Route: 042

REACTIONS (4)
  - AGITATION [None]
  - ERYTHEMA [None]
  - HYPERSENSITIVITY [None]
  - LARYNGOSPASM [None]
